FAERS Safety Report 5756367-5 (Version None)
Quarter: 2008Q2

REPORT INFORMATION
  Report Type: 
  Country: None (occurrence: None)
  Receive Date: 20080529
  Receipt Date: 20080515
  Transmission Date: 20081010
  Serious: Yes (Congenital Anomaly)
  Sender: FDA-Public Use
  Company Number: S08-USA-01773-02

PATIENT
  Sex: Female
  Weight: 2.7805 kg

DRUGS (3)
  1. CELEXA [Suspect]
     Dosage: 20 MG QD TRANSPLACENTAL
     Route: 064
     Dates: start: 20070607, end: 20080108
  2. LEXAPRO [Suspect]
     Dosage: 20 MG QD TRANSPLACENTAL
     Route: 064
     Dates: end: 20070606
  3. PREDNISONE TAB [Concomitant]

REACTIONS (3)
  - JAUNDICE NEONATAL [None]
  - MATERNAL DRUGS AFFECTING FOETUS [None]
  - TALIPES [None]
